FAERS Safety Report 4530742-9 (Version None)
Quarter: 2004Q4

REPORT INFORMATION
  Report Type: 
  Country: None (occurrence: None)
  Receive Date: 20041217
  Receipt Date: 20041215
  Transmission Date: 20050328
  Serious: Yes (Other)
  Sender: FDA-Public Use
  Company Number: DE-GLAXOSMITHKLINE-D0045479A

PATIENT
  Age: 59 Year
  Sex: Female
  Weight: 77 kg

DRUGS (5)
  1. AVANDAMET [Suspect]
     Indication: DIABETES MELLITUS NON-INSULIN-DEPENDENT
     Dosage: 1002MG TWICE PER DAY
     Route: 048
     Dates: start: 20040416, end: 20040820
  2. METFORMIN HCL [Concomitant]
     Indication: DIABETES MELLITUS NON-INSULIN-DEPENDENT
     Dosage: 850MG THREE TIMES PER DAY
     Route: 048
     Dates: end: 20040416
  3. ANTIHYPERTENSIVE [Concomitant]
     Route: 065
  4. ANTI-HYPERLIPIDEMIC [Concomitant]
     Route: 065
  5. ACETYLSALICYLIC ACID [Concomitant]
     Route: 065

REACTIONS (1)
  - LEUKOPENIA [None]
